FAERS Safety Report 6687708-2 (Version None)
Quarter: 2010Q2

REPORT INFORMATION
  Report Type: 
  Country: None (occurrence: None)
  Receive Date: 20100420
  Receipt Date: 20100415
  Transmission Date: 20101027
  Serious: Yes (Other)
  Sender: FDA-Public Use
  Company Number: US-RB-007303-10

PATIENT
  Age: 75 Year
  Sex: Female

DRUGS (2)
  1. MUCINEX [Suspect]
     Dosage: TOOK 2 TABLETS PER DOSE AS DIRECTED FOR 2 DAYS
     Route: 048
     Dates: start: 20050101
  2. AZITHROMYCIN [Concomitant]

REACTIONS (2)
  - BLOOD PRESSURE INCREASED [None]
  - HEART RATE INCREASED [None]
